FAERS Safety Report 10466142 (Version 2)
Quarter: 2015Q1

REPORT INFORMATION
  Report Type: Spontaneous
  Country: JP (occurrence: JP)
  Receive Date: 20140922
  Receipt Date: 20150127
  Transmission Date: 20150720
  Serious: Yes (Other)
  Sender: FDA-Public Use
  Company Number: JP-BRISTOL-MYERS SQUIBB COMPANY-21420096

PATIENT
  Age: 30 Year
  Sex: Female

DRUGS (4)
  1. ABILIFY [Suspect]
     Active Substance: ARIPIPRAZOLE
     Dosage: 6 MG,QD
     Route: 048
     Dates: start: 20130605, end: 20130620
  2. SODIUM VALPROATE [Concomitant]
     Active Substance: VALPROATE SODIUM
  3. ABILIFY [Suspect]
     Active Substance: ARIPIPRAZOLE
     Indication: BIPOLAR DISORDER
     Dosage: 6 MG, QD
     Route: 048
     Dates: start: 20121029, end: 20121130
  4. ABILIFY [Suspect]
     Active Substance: ARIPIPRAZOLE
     Dosage: 3 MG,QD
     Route: 048
     Dates: start: 20130423, end: 20130604

REACTIONS (3)
  - Blood glucose increased [Recovered/Resolved]
  - Fatigue [Unknown]
  - Renal impairment [Not Recovered/Not Resolved]

NARRATIVE: CASE EVENT DATE: 201306
